FAERS Safety Report 9773195 (Version 2)
Quarter: 2013Q4

REPORT INFORMATION
  Report Type: Report from Study
  Country: US (occurrence: US)
  Receive Date: 20131219
  Receipt Date: 20131219
  Transmission Date: 20140711
  Serious: Yes (Other)
  Sender: FDA-Public Use
  Company Number: US-VIIV HEALTHCARE LIMITED-A0757997A

PATIENT
  Age: 27 Year
  Sex: Female

DRUGS (3)
  1. COMBIVIR [Suspect]
     Indication: HIV INFECTION
     Dosage: 900MG PER DAY
     Route: 048
     Dates: start: 20081015
  2. KALETRA [Suspect]
     Indication: HIV INFECTION
     Dosage: 500MG PER DAY
     Route: 048
     Dates: start: 20081015
  3. ATRIPLA [Suspect]
     Indication: HIV INFECTION
     Dosage: 1100MG PER DAY
     Route: 048
     Dates: start: 20081009

REACTIONS (2)
  - Stillbirth [Unknown]
  - Exposure during pregnancy [Unknown]
